FAERS Safety Report 22787267 (Version 4)
Quarter: 2024Q1

REPORT INFORMATION
  Report Type: Spontaneous
  Country: US (occurrence: US)
  Receive Date: 20230804
  Receipt Date: 20240318
  Transmission Date: 20240409
  Serious: Yes (Other)
  Sender: FDA-Public Use
  Company Number: US-BoehringerIngelheim-2023-BI-253614

PATIENT
  Sex: Female

DRUGS (2)
  1. OFEV [Suspect]
     Active Substance: NINTEDANIB
     Indication: Pulmonary fibrosis
  2. ATENOLOL [Concomitant]
     Active Substance: ATENOLOL
     Indication: Arrhythmia

REACTIONS (3)
  - Pulmonary hypertension [Unknown]
  - Dyspnoea [Unknown]
  - Arrhythmia [Unknown]
